FAERS Safety Report 13190234 (Version 6)
Quarter: 2018Q1

REPORT INFORMATION
  Report Type: Spontaneous
  Country: GB (occurrence: GB)
  Receive Date: 20170206
  Receipt Date: 20180329
  Transmission Date: 20180508
  Serious: Yes (Hospitalization, Disabling, Other)
  Sender: FDA-Public Use
  Company Number: GB-MYLANLABS-2016M1044308

PATIENT
  Age: 36 Year
  Sex: Male

DRUGS (8)
  1. CLENIL MODULITE [Concomitant]
     Active Substance: BECLOMETHASONE DIPROPIONATE
     Indication: PRODUCT USED FOR UNKNOWN INDICATION
     Dosage: UNK
  2. CLOZARIL [Suspect]
     Active Substance: CLOZAPINE
     Indication: SCHIZOPHRENIA
     Dosage: UNK
     Route: 048
     Dates: start: 19981120
  3. CLOZARIL [Suspect]
     Active Substance: CLOZAPINE
     Dosage: 500 MG, QD
     Route: 048
     Dates: start: 20010701
  4. ASPIRIN                            /00002701/ [Concomitant]
     Active Substance: ASPIRIN
     Indication: PRODUCT USED FOR UNKNOWN INDICATION
     Dosage: 75 MG, UNK
     Route: 048
  5. COCODAMOL [Concomitant]
     Active Substance: ACETAMINOPHEN\CODEINE PHOSPHATE
     Indication: PRODUCT USED FOR UNKNOWN INDICATION
     Dosage: UNK
  6. ATORVASTATIN [Concomitant]
     Active Substance: ATORVASTATIN
     Indication: BLOOD CHOLESTEROL INCREASED
     Dosage: 40 MG, DAILY
     Route: 048
  7. SULPRIDE [Concomitant]
     Active Substance: SULPIRIDE
     Indication: SCHIZOPHRENIA
     Dosage: 800 MG, DAILY
     Route: 048
  8. DENZAPINE [Concomitant]
     Active Substance: CLOZAPINE
     Indication: PRODUCT USED FOR UNKNOWN INDICATION
     Dosage: UNK
     Dates: start: 20140722

REACTIONS (11)
  - Campylobacter infection [Recovering/Resolving]
  - Malaise [Recovered/Resolved]
  - Hypertension [Recovering/Resolving]
  - Guillain-Barre syndrome [Recovering/Resolving]
  - Lipids increased [Recovering/Resolving]
  - Leukocytosis [Recovering/Resolving]
  - Aspiration [Recovered/Resolved]
  - Neutrophil count increased [Not Recovered/Not Resolved]
  - Diabetes mellitus [Recovering/Resolving]
  - Eosinophilia [Not Recovered/Not Resolved]
  - Platelet count increased [Recovered/Resolved]

NARRATIVE: CASE EVENT DATE: 20010101
